FAERS Safety Report 8805660 (Version 2)
Quarter: 2012Q4

REPORT INFORMATION
  Report Type: Report from Study
  Country: US (occurrence: US)
  Receive Date: 20120924
  Receipt Date: 20121102
  Transmission Date: 20130627
  Serious: Yes (Hospitalization, Other)
  Sender: FDA-Public Use
  Company Number: US-ROCHE-1125562

PATIENT
  Sex: Female
  Weight: 74.91 kg

DRUGS (3)
  1. VEMURAFENIB [Suspect]
     Indication: METASTATIC MALIGNANT MELANOMA
     Route: 048
     Dates: start: 201207, end: 201208
  2. VEMURAFENIB [Suspect]
     Route: 048
     Dates: start: 20120718, end: 20120725
  3. VEMURAFENIB [Suspect]
     Route: 048
     Dates: start: 201210, end: 201210

REACTIONS (5)
  - Oedema peripheral [Recovered/Resolved]
  - Infection [Recovered/Resolved]
  - Rash [Recovered/Resolved]
  - Metastases to central nervous system [Not Recovered/Not Resolved]
  - Cellulitis [Unknown]
